FAERS Safety Report 14837477 (Version 2)
Quarter: 2018Q3

REPORT INFORMATION
  Report Type: Other
  Country: GB (occurrence: GB)
  Receive Date: 20180502
  Receipt Date: 20180720
  Transmission Date: 20181010
  Serious: Yes (Other)
  Sender: FDA-Public Use
  Company Number: GB-ASPEN-GLO2018GB004204

PATIENT
  Age: 59 Year
  Sex: Male

DRUGS (16)
  1. CARBAZINE [Suspect]
     Active Substance: CARBAMAZEPINE
     Dosage: UNK (6 MONTHS PREVIOUSLY)
     Route: 065
  2. BLEOMYCIN SULFATE [Suspect]
     Active Substance: BLEOMYCIN SULFATE
     Dosage: UNK (6 MONTHS PREVIOUSLY)
     Route: 065
  3. CHLORAMBUCIL [Suspect]
     Active Substance: CHLORAMBUCIL
     Dosage: UNK (6 MONTHS PREVIOUSLY)
     Route: 065
  4. ADRIAMYCIN [Suspect]
     Active Substance: DOXORUBICIN HYDROCHLORIDE
     Indication: HODGKIN^S DISEASE MIXED CELLULARITY STAGE IV
     Dosage: UNK (6 MONTHS PREVIOUSLY)
     Route: 065
  5. VINBLASTINE [Suspect]
     Active Substance: VINBLASTINE
     Dosage: UNK (SECOND CHEMOTHERAPY)
     Route: 065
  6. ETOPOSIDE. [Suspect]
     Active Substance: ETOPOSIDE
     Indication: HODGKIN^S DISEASE MIXED CELLULARITY STAGE IV
     Dosage: UNK (SECOND CHEMOTHERAPY)
     Route: 065
  7. PREDNISOLONE. [Suspect]
     Active Substance: PREDNISOLONE
     Indication: HODGKIN^S DISEASE MIXED CELLULARITY STAGE IV
     Dosage: UNK (SECOND CHEMOTHERAPY)
     Route: 065
  8. PREDNISOLONE. [Suspect]
     Active Substance: PREDNISOLONE
     Dosage: UNK (6 MONTHS PREVIOUSLY)
     Route: 065
  9. VINCRISTINE SULFATE. [Suspect]
     Active Substance: VINCRISTINE SULFATE
     Dosage: UNK (SECOND CHEMOTHERAPY)
     Route: 065
  10. BLEOMYCIN SULFATE [Suspect]
     Active Substance: BLEOMYCIN SULFATE
     Indication: HODGKIN^S DISEASE MIXED CELLULARITY STAGE IV
     Dosage: UNK (SECOND CHEMOTHERAPY)
     Route: 065
  11. CARBAZINE [Suspect]
     Active Substance: CARBAMAZEPINE
     Indication: HODGKIN^S DISEASE MIXED CELLULARITY STAGE IV
     Dosage: UNK (SECOND CHEMOTHERAPY)
     Route: 065
  12. VINCRISTINE SULFATE. [Suspect]
     Active Substance: VINCRISTINE SULFATE
     Indication: HODGKIN^S DISEASE MIXED CELLULARITY STAGE IV
     Dosage: UNK (6 MONTHS PREVIOUSLY)
     Route: 065
  13. CHLORAMBUCIL [Suspect]
     Active Substance: CHLORAMBUCIL
     Indication: HODGKIN^S DISEASE MIXED CELLULARITY STAGE IV
     Dosage: UNK (SECOND CHEMOTHERAPY)
     Route: 065
  14. VINBLASTINE [Suspect]
     Active Substance: VINBLASTINE
     Indication: HODGKIN^S DISEASE MIXED CELLULARITY STAGE IV
     Dosage: UNK (6 MONTHS PREVIOUSLY)
     Route: 065
  15. ADRIAMYCIN [Suspect]
     Active Substance: DOXORUBICIN HYDROCHLORIDE
     Dosage: UNK (SECOND CHEMOTHERAPY)
     Route: 065
  16. ETOPOSIDE. [Suspect]
     Active Substance: ETOPOSIDE
     Dosage: UNK (6 MONTHS PREVIOUSLY)
     Route: 065

REACTIONS (3)
  - Retinal haemorrhage [Not Recovered/Not Resolved]
  - Visual acuity reduced [Not Recovered/Not Resolved]
  - Pancytopenia [Recovering/Resolving]
